FAERS Safety Report 9680120 (Version 2)
Quarter: 2013Q4

REPORT INFORMATION
  Report Type: Spontaneous
  Country: JP (occurrence: JP)
  Receive Date: 20131111
  Receipt Date: 20131127
  Transmission Date: 20140711
  Serious: Yes (Hospitalization, Other)
  Sender: FDA-Public Use
  Company Number: JP-ROCHE-1298407

PATIENT
  Age: 53 Year
  Sex: Female
  Weight: 59 kg

DRUGS (13)
  1. PERJETA [Suspect]
     Indication: BREAST CANCER METASTATIC
     Route: 041
     Dates: start: 20131019
  2. PERJETA [Suspect]
     Indication: BREAST CANCER METASTATIC
     Route: 041
     Dates: start: 20131019, end: 20131019
  3. PERJETA [Suspect]
     Indication: BREAST CANCER METASTATIC
     Route: 041
     Dates: start: 20131111
  4. AVASTIN [Suspect]
     Indication: METASTASES TO LIVER
     Route: 041
     Dates: start: 20130105, end: 20131019
  5. HERCEPTIN [Suspect]
     Indication: ADJUVANT THERAPY
     Route: 041
     Dates: start: 20110115, end: 20111210
  6. HERCEPTIN [Suspect]
     Indication: METASTASES TO LYMPH NODES
     Route: 041
     Dates: start: 20121006, end: 20130105
  7. HERCEPTIN [Suspect]
     Indication: BREAST CANCER METASTATIC
     Dosage: SINGLE DOSE ADMINISTRATION
     Route: 041
     Dates: start: 20131019
  8. TAXOL [Suspect]
     Indication: METASTASES TO LIVER
     Route: 041
     Dates: start: 20130105, end: 20131019
  9. TAXOTERE [Suspect]
     Indication: BREAST CANCER METASTATIC
     Dosage: SINGLE DOSE ADMINISTRATION
     Route: 041
     Dates: start: 20131019
  10. LOPEMIN [Concomitant]
     Indication: PROPHYLAXIS
     Dosage: SINGLE DOSE ADMINISTRATION
     Route: 048
     Dates: start: 20131019
  11. LOXOPROFEN SODIUM [Concomitant]
     Indication: PROPHYLAXIS
     Dosage: SINGLE DOSE ADMINISTRATION
     Route: 048
     Dates: start: 20131019
  12. DECADRON [Concomitant]
     Indication: PROPHYLAXIS
     Route: 048
     Dates: start: 20131020
  13. FAMOTIDINE [Concomitant]
     Indication: PROPHYLAXIS
     Route: 048
     Dates: start: 20131020

REACTIONS (15)
  - Rash [Recovering/Resolving]
  - Arthralgia [Recovered/Resolved]
  - Malaise [Recovered/Resolved]
  - Febrile neutropenia [Recovered/Resolved]
  - Skin disorder [Not Recovered/Not Resolved]
  - Skin necrosis [Unknown]
  - Acne [Unknown]
  - Dermatitis acneiform [Recovering/Resolving]
  - Decreased appetite [Recovered/Resolved]
  - Pruritus [Recovering/Resolving]
  - Skin exfoliation [Recovering/Resolving]
  - Nausea [Unknown]
  - Skin disorder [Recovering/Resolving]
  - Neuropathy peripheral [Unknown]
  - Oedema peripheral [Unknown]
